FAERS Safety Report 19327322 (Version 1)
Quarter: 2021Q2

REPORT INFORMATION
  Report Type: Spontaneous
  Country: US (occurrence: US)
  Receive Date: 20210528
  Receipt Date: 20210528
  Transmission Date: 20210717
  Serious: No
  Sender: FDA-Public Use
  Company Number: US-GW PHARMA-202105USGW02553

PATIENT

DRUGS (1)
  1. EPIDIOLEX [Suspect]
     Active Substance: CANNABIDIOL
     Indication: LENNOX-GASTAUT SYNDROME
     Dosage: 220 MILLIGRAM, BID (DOSE INCREASED TO 270 MG, BID BUT NOT YET SHIPPED)
     Route: 058
     Dates: start: 201908

REACTIONS (2)
  - Seizure [Unknown]
  - Incorrect route of product administration [Unknown]
